FAERS Safety Report 9421425 (Version 3)
Quarter: 2014Q1

REPORT INFORMATION
  Report Type: Report from Study
  Country: AU (occurrence: AU)
  Receive Date: 20130725
  Receipt Date: 20140116
  Transmission Date: 20141002
  Serious: Yes (Life-Threatening, Hospitalization)
  Sender: FDA-Public Use
  Company Number: AU-ROCHE-1253231

PATIENT
  Age: 82 Year
  Sex: Male

DRUGS (3)
  1. RANIBIZUMAB [Suspect]
     Indication: PRODUCT USED FOR UNKNOWN INDICATION
     Route: 050
     Dates: start: 20120517
  2. RANIBIZUMAB [Suspect]
     Route: 050
     Dates: end: 20130429
  3. RANIBIZUMAB [Suspect]
     Route: 050
     Dates: start: 20130307, end: 20130307

REACTIONS (1)
  - Cerebrovascular accident [Not Recovered/Not Resolved]
